FAERS Safety Report 6029852-9 (Version None)
Quarter: 2009Q1

REPORT INFORMATION
  Report Type: 
  Country: None (occurrence: None)
  Receive Date: 20090106
  Receipt Date: 20090106
  Transmission Date: 20090719
  Serious: No
  Sender: FDA-Public Use
  Company Number: None

PATIENT
  Sex: Female
  Weight: 45.3597 kg

DRUGS (1)
  1. ZOCOR [Suspect]
     Indication: BLOOD CHOLESTEROL INCREASED
     Dosage: 1 TABLET DAILY
     Dates: start: 20080430

REACTIONS (5)
  - BURNING MOUTH SYNDROME [None]
  - BURNING SENSATION [None]
  - NERVOUS SYSTEM DISORDER [None]
  - ORAL DISCOMFORT [None]
  - PERIPHERAL COLDNESS [None]
